FAERS Safety Report 5975977-3 (Version None)
Quarter: 2008Q4

REPORT INFORMATION
  Report Type: 
  Country: None (occurrence: None)
  Receive Date: 20081202
  Receipt Date: 20081119
  Transmission Date: 20090506
  Serious: Yes (Other)
  Sender: FDA-Public Use
  Company Number: PHHY2008JP29921

PATIENT
  Sex: Male

DRUGS (18)
  1. DIOVAN [Suspect]
     Indication: HYPERTENSION
     Dosage: 80 MG, QD
     Route: 048
     Dates: start: 20071026, end: 20080728
  2. DIOVAN [Suspect]
     Dosage: 40 MG, QD
     Route: 048
     Dates: start: 20080729, end: 20080809
  3. FLUITRAN [Concomitant]
     Indication: HYPERTENSION
     Dosage: 1 MG
     Route: 048
     Dates: start: 20060309
  4. FLUITRAN [Concomitant]
     Dosage: 2 MG
  5. NU-LOTAN [Concomitant]
     Indication: HYPERTENSION
     Dosage: 50 MG
     Route: 048
     Dates: start: 20060407
  6. LASIX [Concomitant]
     Indication: HYPERTENSION
     Dosage: 40 MG
     Route: 048
     Dates: start: 20060512
  7. LASIX [Concomitant]
     Dosage: 80 MG
     Route: 048
  8. LASIX [Concomitant]
     Dosage: 160 MG
     Route: 048
  9. JUSO [Concomitant]
     Dosage: 1.5 G
     Route: 048
     Dates: start: 20080307
  10. CALCIUM POLYSTYRENE SULFONATE [Concomitant]
     Dosage: 75G
     Route: 048
     Dates: start: 20080307
  11. KINEDAK [Concomitant]
     Dosage: 150 MG
     Route: 048
     Dates: start: 20070607
  12. OPALMON [Concomitant]
     Dosage: UNK
     Route: 048
     Dates: start: 20070608
  13. PITAVASTATIN CALCIUM [Concomitant]
     Dosage: 2 MG
     Route: 048
     Dates: start: 20080817
  14. CALCIUM CARBONATE [Concomitant]
     Dosage: 1500 MG
     Route: 048
     Dates: start: 20080722
  15. CALCIUM CARBONATE [Concomitant]
     Dosage: 3000MG
     Route: 048
  16. FOLIAMIN [Concomitant]
     Dosage: 10 MG
     Route: 048
     Dates: start: 20080722
  17. CYANOCOBALAMIN [Concomitant]
     Dosage: 1500 UG
     Route: 048
     Dates: start: 20080722
  18. ASPIRIN [Concomitant]
     Dosage: 100 MG
     Route: 048
     Dates: start: 20080727

REACTIONS (5)
  - BLOOD CREATININE INCREASED [None]
  - BLOOD UREA INCREASED [None]
  - HYPOTENSION [None]
  - PROTEIN URINE PRESENT [None]
  - SURGICAL VASCULAR SHUNT [None]
